FAERS Safety Report 4733430-9 (Version None)
Quarter: 2005Q3

REPORT INFORMATION
  Report Type: 
  Country: None (occurrence: None)
  Receive Date: 20050729
  Receipt Date: 20050725
  Transmission Date: 20060218
  Serious: Yes (Other)
  Sender: FDA-Public Use
  Company Number: B0387202A

PATIENT
  Age: 70 Year
  Sex: Female

DRUGS (3)
  1. CEFUROXIME SODIUM [Suspect]
     Indication: ANTIBIOTIC PROPHYLAXIS
     Dosage: 750 MG INTRAVENOUS
     Route: 042
  2. DIAZEPAM [Concomitant]
  3. SODIUM CHLORIDE [Concomitant]

REACTIONS (16)
  - ARTERIOSPASM CORONARY [None]
  - BLOOD IMMUNOGLOBULIN E INCREASED [None]
  - BLOOD PRESSURE DECREASED [None]
  - CHEST PAIN [None]
  - CYANOSIS [None]
  - ELECTROCARDIOGRAM ST SEGMENT ELEVATION [None]
  - HEART RATE INCREASED [None]
  - HISTAMINE LEVEL INCREASED [None]
  - HYPERSENSITIVITY [None]
  - MYOCARDIAL ISCHAEMIA [None]
  - PALLOR [None]
  - PERIORBITAL OEDEMA [None]
  - PRURITUS [None]
  - RASH ERYTHEMATOUS [None]
  - TRYPTASE INCREASED [None]
  - VOMITING [None]
